FAERS Safety Report 9316764 (Version 1)
Quarter: 2012Q4

REPORT INFORMATION
  Report Type: Spontaneous
  Country: GB (occurrence: None)
  Receive Date: 20121213
  Receipt Date: 20121213
  Transmission Date: 20130627
  Serious: Yes (Other)
  Sender: FDA-Public Use
  Company Number: GER/UKI/12/0024544

PATIENT
  Age: 68 Year
  Sex: Female

DRUGS (6)
  1. RISPERIDONE (RISPERIDONE) [Suspect]
     Indication: PSYCHOSIS
     Dosage: 0.5 mg, 1 in 1 D, Oral
     Route: 048
     Dates: start: 20120403, end: 20120411
  2. MEMANTINE (MEMANTINE) [Suspect]
     Indication: ALZHEIMER^S DISEASE
     Dosage: 10 mg, 1 in 1 D, Oral
     Route: 048
     Dates: start: 20120106, end: 20120418
  3. ALENDRONIC ACID (ALENDRONIC ACID) [Concomitant]
  4. CALCICHEW D3 (LEKOVIT CA) [Concomitant]
  5. ASPIRIN (ACETYLSALICYLIC ACID) [Concomitant]
  6. SIMVASTATIN (SIMVASTATIN) [Concomitant]

REACTIONS (3)
  - Hypotension [None]
  - Feeling abnormal [None]
  - Sinus bradycardia [None]
